FAERS Safety Report 8009425-9 (Version None)
Quarter: 2011Q4

REPORT INFORMATION
  Report Type: 
  Country: None (occurrence: None)
  Receive Date: 20111227
  Receipt Date: 20111215
  Transmission Date: 20120403
  Serious: Yes (Hospitalization, Other)
  Sender: FDA-Public Use
  Company Number: US-ROCHE-803092

PATIENT
  Sex: Female
  Weight: 63.56 kg

DRUGS (3)
  1. ACCUTANE [Suspect]
     Indication: ACNE
     Dates: start: 19840101, end: 19910101
  2. MIDOL CRAMP (UNITED STATES) [Concomitant]
     Indication: MUSCLE SPASMS
  3. ACETAMINOPHEN [Concomitant]
     Indication: PYREXIA

REACTIONS (9)
  - FEMALE GENITAL TRACT FISTULA [None]
  - COLITIS ULCERATIVE [None]
  - CROHN'S DISEASE [None]
  - INFLAMMATORY BOWEL DISEASE [None]
  - DIVERTICULITIS [None]
  - IRRITABLE BOWEL SYNDROME [None]
  - DEPRESSION [None]
  - INTESTINAL HAEMORRHAGE [None]
  - INTESTINAL OBSTRUCTION [None]
